FAERS Safety Report 6619172-3 (Version None)
Quarter: 2010Q1

REPORT INFORMATION
  Report Type: 
  Country: None (occurrence: None)
  Receive Date: 20100304
  Receipt Date: 20100304
  Transmission Date: 20100710
  Serious: Yes (Hospitalization, Other)
  Sender: FDA-Public Use
  Company Number: None

PATIENT
  Age: 30 Year
  Sex: Female
  Weight: 58.9676 kg

DRUGS (8)
  1. TRI LO SPRINTEC [Suspect]
     Indication: DYSMENORRHOEA
     Dosage: LOW DOSE DAILY PO
     Route: 048
     Dates: start: 20091001, end: 20100221
  2. TRI LO SPRINTEC [Suspect]
     Indication: HAEMORRHAGE
     Dosage: LOW DOSE DAILY PO
     Route: 048
     Dates: start: 20091001, end: 20100221
  3. TRI LO SPRINTEC [Suspect]
     Indication: UTERINE LEIOMYOMA
     Dosage: LOW DOSE DAILY PO
     Route: 048
     Dates: start: 20091001, end: 20100221
  4. PROGRAF [Concomitant]
  5. IMURAN [Concomitant]
  6. PREDNISONE [Concomitant]
  7. LISINORPIRL [Concomitant]
  8. CELEXA [Concomitant]

REACTIONS (2)
  - DEEP VEIN THROMBOSIS [None]
  - PRODUCT SUBSTITUTION ISSUE [None]
